FAERS Safety Report 4317584-4 (Version None)
Quarter: 2004Q1

REPORT INFORMATION
  Report Type: 
  Country: None (occurrence: None)
  Receive Date: 20040312
  Receipt Date: 20040302
  Transmission Date: 20041129
  Serious: Yes (Life-Threatening, Other)
  Sender: FDA-Public Use
  Company Number: 2004-00889

PATIENT
  Age: 46 Year
  Sex: Male

DRUGS (3)
  1. HYDROCORTISONE ACETATE [Suspect]
     Indication: SEPTIC SHOCK
     Dosage: SEE IMAGE
  2. ALDOSTERONE ANTAGONIST [Concomitant]
  3. SODIUM FREE FLUIDS [Concomitant]

REACTIONS (2)
  - CONDITION AGGRAVATED [None]
  - HYPERNATRAEMIA [None]
